FAERS Safety Report 7574970-7 (Version None)
Quarter: 2011Q2

REPORT INFORMATION
  Report Type: 
  Country: None (occurrence: None)
  Receive Date: 20110627
  Receipt Date: 20110127
  Transmission Date: 20111010
  Serious: Yes (Hospitalization)
  Sender: FDA-Public Use
  Company Number: US-BAYER-201037396NA

PATIENT
  Age: 32 Year
  Sex: Female
  Weight: 83.9 kg

DRUGS (3)
  1. YASMIN [Suspect]
     Dosage: UNK
     Route: 048
     Dates: start: 20010101, end: 20080101
  2. DROSPIRENONE AND ETHINYL ESTRADIOL [Suspect]
     Dosage: UNK
     Route: 048
     Dates: start: 20010101, end: 20080101
  3. LEVAQUIN [Concomitant]

REACTIONS (13)
  - GALLBLADDER OEDEMA [None]
  - NAUSEA [None]
  - EMOTIONAL DISTRESS [None]
  - INJURY [None]
  - GALLBLADDER INJURY [None]
  - GALLBLADDER CHOLESTEROLOSIS [None]
  - GASTROENTERITIS [None]
  - PAIN [None]
  - VOMITING [None]
  - CHOLECYSTITIS CHRONIC [None]
  - DIARRHOEA [None]
  - SCAR [None]
  - MENTAL DISORDER [None]
